FAERS Safety Report 8050429-8 (Version None)
Quarter: 2012Q1

REPORT INFORMATION
  Report Type: 
  Country: None (occurrence: None)
  Receive Date: 20120117
  Receipt Date: 20120105
  Transmission Date: 20120608
  Serious: Yes (Hospitalization)
  Sender: FDA-Public Use
  Company Number: JP-ALLERGAN-1116946US

PATIENT
  Age: 47 Year
  Sex: Female

DRUGS (3)
  1. EPINASTINE HYDROCHLORIDE [Suspect]
     Indication: EUSTACHIAN TUBE OBSTRUCTION
     Dosage: UNK
     Dates: start: 20110601, end: 20111108
  2. CELECOXIB [Suspect]
  3. AZULFIDINE [Suspect]

REACTIONS (1)
  - TOXIC SKIN ERUPTION [None]
